FAERS Safety Report 11607199 (Version 1)
Quarter: 2015Q4

REPORT INFORMATION
  Report Type: Spontaneous
  Country: US (occurrence: US)
  Receive Date: 20151007
  Receipt Date: 20151007
  Transmission Date: 20160304
  Serious: No
  Sender: FDA-Public Use
  Company Number: US-PFIZER INC-2015304834

PATIENT
  Age: 79 Year
  Sex: Male
  Weight: 64 kg

DRUGS (23)
  1. TAMSULOSIN HCL [Concomitant]
     Active Substance: TAMSULOSIN
     Indication: URINARY TRACT DISORDER
     Dosage: 0.4 MG, 1X/DAY, AT NIGHT
  2. SAW PALMETTO [Concomitant]
     Active Substance: SAW PALMETTO
     Indication: URINARY TRACT DISORDER
     Dosage: 900 MG, 2X/DAY, 450 MG TWO IN MORNING AND TWO AT NIGHT
  3. LEVAMIR INSULIN [Concomitant]
  4. D-3 [Concomitant]
     Active Substance: CHOLECALCIFEROL
     Indication: VITAMIN D
     Dosage: UNK, 1X/DAY, 2000
  5. FISH OIL [Concomitant]
     Active Substance: FISH OIL
     Dosage: 1200 MG, 1X/DAY
  6. OMEPRAZOLE. [Concomitant]
     Active Substance: OMEPRAZOLE
     Indication: DYSPEPSIA
     Dosage: 20 MG, 1X/DAY
  7. METFORMIN [Concomitant]
     Active Substance: METFORMIN HYDROCHLORIDE
     Indication: BLOOD GLUCOSE ABNORMAL
     Dosage: 1000 MG, 2X/DAY, ONE IN MORNING AND ONE AT NIGHT
  8. ASPIRIN. [Concomitant]
     Active Substance: ASPIRIN
     Dosage: 81 MG, DAILY
  9. B6 [Concomitant]
     Active Substance: PYRIDOXINE HYDROCHLORIDE
     Indication: BLOOD GLUCOSE ABNORMAL
     Dosage: 100 MG, 2X/DAY, ONE IN MORNING AND ONE AT NIGHT
  10. LISINOPRIL. [Concomitant]
     Active Substance: LISINOPRIL
     Indication: BLOOD PRESSURE MEASUREMENT
     Dosage: 2.5 MG, 1X/DAY
     Dates: end: 20150908
  11. CLOPIDOGREL [Concomitant]
     Active Substance: CLOPIDOGREL BISULFATE
     Dosage: 75 MG, 1X/DAY
  12. MAGNESIUM OXIDE. [Concomitant]
     Active Substance: MAGNESIUM OXIDE
     Indication: BLOOD MAGNESIUM
     Dosage: 1200 MG, DAILY, 400MG TWO IN THE MORNING AND ONE AT NIGHT
  13. VFEND [Suspect]
     Active Substance: VORICONAZOLE
     Dosage: 200 MG, 2X/DAY, ONE IN THE MORNING AND EVENING
  14. FUROSEMIDE. [Concomitant]
     Active Substance: FUROSEMIDE
     Indication: PERIPHERAL SWELLING
     Dosage: 40 MG, 1X/DAY
  15. POTASSIUM [Concomitant]
     Active Substance: POTASSIUM
     Indication: MUSCLE SPASMS
     Dosage: 20 MG, 1X/DAY
  16. NIACIN. [Concomitant]
     Active Substance: NIACIN
     Indication: FLUID RETENTION
  17. METOPROLOL [Suspect]
     Active Substance: METOPROLOL
     Dosage: 50 MG, 2X/DAY, ONE IN MORNING AND EVENING
     Dates: start: 20140829
  18. GLIPIZIDE. [Concomitant]
     Active Substance: GLIPIZIDE
     Indication: BLOOD GLUCOSE ABNORMAL
     Dosage: 2.5 MG, 1X/DAY
  19. FOLBEE [Concomitant]
  20. VFEND [Suspect]
     Active Substance: VORICONAZOLE
     Indication: FUNGAL INFECTION
     Dosage: 2 DF, 2X/DAY
     Dates: start: 20150903
  21. HYDROCHLOROTHIAZIDE. [Concomitant]
     Active Substance: HYDROCHLOROTHIAZIDE
     Indication: FLUID RETENTION
     Dosage: 12.5 MG, 1X/DAY
  22. IRON [Concomitant]
     Active Substance: IRON
     Indication: BLOOD IRON DECREASED
     Dosage: 65 MG, 1X/DAY, AT NIGHT
  23. NIACIN. [Concomitant]
     Active Substance: NIACIN
     Indication: SWELLING
     Dosage: 1500 MG, DAILY, 500MG TWO IN THE MORNING AND ONE AT NIGHT

REACTIONS (1)
  - Dizziness [Not Recovered/Not Resolved]
